FAERS Safety Report 8427107-6 (Version None)
Quarter: 2012Q2

REPORT INFORMATION
  Report Type: 
  Country: None (occurrence: None)
  Receive Date: 20120611
  Receipt Date: 20120606
  Transmission Date: 20120825
  Serious: Yes (Other)
  Sender: FDA-Public Use
  Company Number: US-ROCHE-788876

PATIENT
  Sex: Male
  Weight: 79.45 kg

DRUGS (6)
  1. MERCAPTOPURINE [Concomitant]
  2. ACCUTANE [Suspect]
     Indication: ACNE
     Route: 065
     Dates: start: 19981201, end: 19990501
  3. PURINETHOL [Concomitant]
     Route: 048
  4. REMICADE [Concomitant]
  5. CIMZIA [Concomitant]
  6. ACCUTANE [Suspect]
     Route: 065
     Dates: start: 19990101, end: 20000101

REACTIONS (4)
  - INFLAMMATORY BOWEL DISEASE [None]
  - EMOTIONAL DISTRESS [None]
  - INTESTINAL OBSTRUCTION [None]
  - CROHN'S DISEASE [None]
